FAERS Safety Report 23167381 (Version 1)
Quarter: 2023Q4

REPORT INFORMATION
  Report Type: Spontaneous
  Country: US (occurrence: None)
  Receive Date: 20231109
  Receipt Date: 20231109
  Transmission Date: 20240109
  Serious: Yes (Hospitalization)
  Sender: FDA-Public Use
  Company Number: None

PATIENT
  Sex: Male

DRUGS (9)
  1. VEMLIDY [Suspect]
     Active Substance: TENOFOVIR ALAFENAMIDE FUMARATE
     Indication: Interstitial lung disease
     Dosage: FREQUENCY : DAILY;?
     Route: 048
  2. VEMLIDY [Suspect]
     Active Substance: TENOFOVIR ALAFENAMIDE FUMARATE
     Dosage: FREQUENCY : DAILY;?
     Route: 048
  3. ADVAIR HFA AER [Concomitant]
  4. ALBUTEROL AER HFA [Concomitant]
  5. OFEV [Concomitant]
     Active Substance: NINTEDANIB
  6. PANTOPRAZOLE [Concomitant]
     Active Substance: PANTOPRAZOLE
  7. PREDNISONE [Concomitant]
  8. PREVYMIS [Concomitant]
     Active Substance: LETERMOVIR
  9. TACROLIMUS [Concomitant]
     Active Substance: TACROLIMUS

REACTIONS (5)
  - Lung transplant [None]
  - Liver transplant [None]
  - Alopecia [None]
  - Deafness [None]
  - Nonspecific reaction [None]
